FAERS Safety Report 8398893-9 (Version None)
Quarter: 2012Q1

REPORT INFORMATION
  Report Type: 
  Country: None (occurrence: None)
  Receive Date: 20120323
  Receipt Date: 20111212
  Transmission Date: 20120608
  Serious: Yes (Other)
  Sender: FDA-Public Use
  Company Number: 163-21880-11113000

PATIENT
  Age: 89 Year
  Sex: Female
  Weight: 65.7716 kg

DRUGS (10)
  1. DEXAMETHASONE [Concomitant]
  2. HYDROCHLOROTHIAZIDE [Concomitant]
  3. REVLIMID [Suspect]
     Indication: MULTIPLE MYELOMA
     Dosage: 25 MG, 1 IN 1 D, PO
     Route: 048
     Dates: start: 20111114, end: 20111114
  4. HYDRALAZINE (HYDRALAZINE) (UNKNOWN) [Concomitant]
  5. POTASSIUM (POTASSIUM) (UNKNOWN) [Concomitant]
  6. ADVIL (IBUPROFEN) (UNKNOWN) [Concomitant]
  7. ASPIRIN [Concomitant]
  8. MAGNESIUM (MAGNESIUM) (UNKNOWN) [Concomitant]
  9. ENALAPRIL MALEATE [Concomitant]
  10. ALLOPURINOL [Concomitant]

REACTIONS (4)
  - ABDOMINAL DISCOMFORT [None]
  - VOMITING [None]
  - FATIGUE [None]
  - CHILLS [None]
